FAERS Safety Report 7367304-4 (Version None)
Quarter: 2011Q1

REPORT INFORMATION
  Report Type: 
  Country: None (occurrence: None)
  Receive Date: 20110322
  Receipt Date: 20110314
  Transmission Date: 20110831
  Serious: Yes (Other)
  Sender: FDA-Public Use
  Company Number: US-JNJFOC-20110307108

PATIENT
  Sex: Male
  Weight: 56.7 kg

DRUGS (2)
  1. DURAGESIC-50 [Suspect]
     Indication: PAIN
     Route: 062
  2. PREDNISONE [Concomitant]
     Route: 048

REACTIONS (2)
  - WEIGHT INCREASED [None]
  - PNEUMONIA LEGIONELLA [None]
